FAERS Safety Report 23298688 (Version 1)
Quarter: 2023Q4

REPORT INFORMATION
  Report Type: Spontaneous
  Country: JP (occurrence: JP)
  Receive Date: 20231214
  Receipt Date: 20231214
  Transmission Date: 20240110
  Serious: Yes (Life-Threatening, Hospitalization, Other)
  Sender: FDA-Public Use
  Company Number: JP-PBT-008775

PATIENT
  Age: 71 Year
  Sex: Female

DRUGS (2)
  1. TACROLIMUS [Suspect]
     Active Substance: TACROLIMUS
     Indication: Prophylaxis against transplant rejection
     Route: 048
  2. TACROLIMUS [Suspect]
     Active Substance: TACROLIMUS
     Indication: Prophylaxis against transplant rejection
     Dosage: 1 MG/DAY
     Route: 048

REACTIONS (5)
  - Acute kidney injury [Unknown]
  - Post transplant lymphoproliferative disorder [Unknown]
  - Tumour lysis syndrome [Unknown]
  - Subdural haematoma [Unknown]
  - Hepatic function abnormal [Unknown]
